FAERS Safety Report 5276994-1 (Version None)
Quarter: 2007Q1

REPORT INFORMATION
  Report Type: 
  Country: None (occurrence: None)
  Receive Date: 20070327
  Receipt Date: 20061219
  Transmission Date: 20070707
  Serious: No
  Sender: FDA-Public Use
  Company Number: US-BRISTOL-MYERS SQUIBB COMPANY-13618053

PATIENT
  Age: 38 Year
  Sex: Female

DRUGS (2)
  1. ORENCIA [Suspect]
     Indication: RHEUMATOID ARTHRITIS
     Dosage: 3 VIALS IV, 3 MONTHS AGO
     Route: 042
  2. AVONEX [Concomitant]

REACTIONS (1)
  - VISUAL ACUITY REDUCED [None]
